FAERS Safety Report 26048332 (Version 1)
Quarter: 2025Q4

REPORT INFORMATION
  Report Type: Spontaneous
  Country: US (occurrence: US)
  Receive Date: 20251114
  Receipt Date: 20251114
  Transmission Date: 20260118
  Serious: Yes (Hospitalization)
  Sender: MYLAN
  Company Number: US-MYLANLABS-2025M1095887

PATIENT
  Age: 42 Year
  Sex: Male

DRUGS (1)
  1. FLUPHENAZINE DECANOATE [Suspect]
     Active Substance: FLUPHENAZINE DECANOATE
     Indication: Product used for unknown indication
     Dosage: 125 MILLIGRAM, MULTIUSE 5ML VIALS CONTAINING 25 MG/ML; TENFOLD DOSE ACTUAL DOSE 12.5MG...

REACTIONS (2)
  - Accidental overdose [Unknown]
  - Product administration error [Unknown]
